FAERS Safety Report 11641539 (Version 3)
Quarter: 2015Q4

REPORT INFORMATION
  Report Type: Report from Study
  Country: TW (occurrence: TW)
  Receive Date: 20151019
  Receipt Date: 20151116
  Transmission Date: 20160304
  Serious: Yes (Hospitalization)
  Sender: FDA-Public Use
  Company Number: TW-ABBVIE-15K-153-1480525-00

PATIENT
  Age: 79 Year
  Sex: Female
  Weight: 57.5 kg

DRUGS (8)
  1. ASPIRIN. [Concomitant]
     Active Substance: ASPIRIN
     Indication: PRODUCT USED FOR UNKNOWN INDICATION
     Route: 048
     Dates: start: 20120321
  2. FLUDIAZEPAM [Concomitant]
     Active Substance: FLUDIAZEPAM
     Indication: INSOMNIA
     Route: 048
     Dates: start: 20120321
  3. NEXIUM [Concomitant]
     Active Substance: ESOMEPRAZOLE MAGNESIUM
     Indication: GASTRITIS
  4. FOLIC ACID. [Concomitant]
     Active Substance: FOLIC ACID
     Indication: RHEUMATOID ARTHRITIS
     Route: 048
     Dates: start: 20120206
  5. HUMIRA [Suspect]
     Active Substance: ADALIMUMAB
     Indication: RHEUMATOID ARTHRITIS
     Route: 058
     Dates: start: 20121213, end: 20150917
  6. NEXIUM [Concomitant]
     Active Substance: ESOMEPRAZOLE MAGNESIUM
     Indication: GASTROOESOPHAGEAL REFLUX DISEASE
     Route: 048
     Dates: start: 20131010
  7. METHOTREXATE [Concomitant]
     Active Substance: METHOTREXATE
     Indication: RHEUMATOID ARTHRITIS
     Route: 048
     Dates: start: 20120206
  8. EXFORGE [Concomitant]
     Active Substance: AMLODIPINE BESYLATE\VALSARTAN
     Indication: HYPERTENSION
     Dosage: AMLODIPINE 5MG+VALSARTAN 160MG
     Route: 048
     Dates: start: 20131010

REACTIONS (17)
  - Hepatic cirrhosis [Recovered/Resolved]
  - Portal vein thrombosis [Unknown]
  - Pyrexia [Unknown]
  - Pyrexia [Unknown]
  - C-reactive protein increased [Unknown]
  - Pyrexia [Unknown]
  - Pyrexia [Unknown]
  - Cholelithiasis [Unknown]
  - Ascites [Recovered/Resolved]
  - Pyrexia [Unknown]
  - Splenomegaly [Unknown]
  - Pleural effusion [Unknown]
  - White blood cell count increased [Unknown]
  - White blood cell count decreased [Unknown]
  - Peritonitis bacterial [Recovered/Resolved]
  - Blood albumin decreased [Unknown]
  - Pyrexia [Unknown]

NARRATIVE: CASE EVENT DATE: 201510
